FAERS Safety Report 20976206 (Version 7)
Quarter: 2024Q4

REPORT INFORMATION
  Report Type: Spontaneous
  Country: US (occurrence: US)
  Receive Date: 20220617
  Receipt Date: 20241011
  Transmission Date: 20250114
  Serious: Yes (Hospitalization, Other)
  Sender: PFIZER
  Company Number: US-PFIZER INC-PV202200003237

PATIENT
  Age: 64 Year
  Sex: Female

DRUGS (12)
  1. XELJANZ XR [Suspect]
     Active Substance: TOFACITINIB CITRATE
     Indication: Rheumatoid arthritis
     Dosage: UNK
     Route: 048
  2. XELJANZ XR [Suspect]
     Active Substance: TOFACITINIB CITRATE
     Dosage: 11 MG, 1X/DAY
     Route: 048
     Dates: start: 20230306
  3. XELJANZ XR [Suspect]
     Active Substance: TOFACITINIB CITRATE
     Dosage: 11 MG, 1X/DAY
     Route: 048
     Dates: start: 20240402
  4. ESCITALOPRAM [Concomitant]
     Active Substance: ESCITALOPRAM OXALATE
     Dosage: UNK
  5. BUSPAR [Concomitant]
     Active Substance: BUSPIRONE HYDROCHLORIDE
     Indication: Stress
     Dosage: 7.5 MG, AS NEEDED (1.5 TABLET TID)
     Dates: start: 20230505
  6. XANAX [Concomitant]
     Active Substance: ALPRAZOLAM
     Indication: Stress
     Dosage: 0.25 MG, DAILY AS NEEDED
     Route: 048
     Dates: start: 20230724
  7. FLEXERIL [Concomitant]
     Active Substance: CYCLOBENZAPRINE HYDROCHLORIDE
     Dosage: 5 MG, 2X/DAY
     Route: 048
     Dates: start: 20220928
  8. ALLEGRA D-12 HOUR [Concomitant]
     Active Substance: FEXOFENADINE HYDROCHLORIDE\PSEUDOEPHEDRINE HYDROCHLORIDE
     Dosage: 1 DF, EVERY 12 HOURS AS NEEDED
     Route: 048
     Dates: start: 20180807
  9. PROZAC [Concomitant]
     Active Substance: FLUOXETINE HYDROCHLORIDE
     Dosage: 1 TAB DAILY FOR 2-4 WEEKS THEN 1 TAB EVERY OTHER DAY FOR 2-4 WEEKS
     Route: 048
     Dates: start: 20240117
  10. FLONASE [Concomitant]
     Active Substance: FLUTICASONE PROPIONATE
     Dosage: ONE INHALATION TWICE A DAY
     Dates: start: 20231002
  11. IBUPROFEN [Concomitant]
     Active Substance: IBUPROFEN
     Dosage: 600 MG, TWICE DAILY AS NEEDED WITH FOOD
     Route: 048
     Dates: start: 20240314
  12. PERCOCET [Concomitant]
     Active Substance: ACETAMINOPHEN\OXYCODONE HYDROCHLORIDE
     Indication: Pain
     Dosage: 1 TAB EVERY 12 HRS AS NEEDED MAX DAILY AMOUNT: 2 TAB
     Route: 048
     Dates: start: 20231002

REACTIONS (4)
  - Spinal rod insertion [Unknown]
  - Intestinal operation [Unknown]
  - Ear discomfort [Unknown]
  - Sinusitis [Unknown]

NARRATIVE: CASE EVENT DATE: 20220101
